FAERS Safety Report 21850643 (Version 1)
Quarter: 2023Q1

REPORT INFORMATION
  Report Type: Spontaneous
  Country: US (occurrence: US)
  Receive Date: 20230111
  Receipt Date: 20230111
  Transmission Date: 20230418
  Serious: No
  Sender: FDA-Public Use
  Company Number: US-GALDERMA-US2022017712

PATIENT

DRUGS (1)
  1. DIFFERIN GEL [Suspect]
     Active Substance: ADAPALENE
     Indication: Skin disorder
     Dosage: 1 DOSAGE FORM
     Route: 061

REACTIONS (3)
  - Skin swelling [Recovered/Resolved with Sequelae]
  - Skin exfoliation [Unknown]
  - Dry skin [Recovered/Resolved with Sequelae]
